FAERS Safety Report 10177985 (Version 1)
Quarter: 2014Q2

REPORT INFORMATION
  Report Type: Spontaneous
  Country: CH (occurrence: CH)
  Receive Date: 20140516
  Receipt Date: 20140516
  Transmission Date: 20141212
  Serious: Yes (Hospitalization)
  Sender: FDA-Public Use
  Company Number: CH-ELI_LILLY_AND_COMPANY-CH201405002809

PATIENT
  Age: 63 Year
  Sex: Male
  Weight: 66 kg

DRUGS (6)
  1. CYMBALTA [Suspect]
     Indication: DEPRESSION
     Dosage: 60 MG, QD
     Route: 048
     Dates: start: 201309, end: 20140331
  2. CLOZAPINE [Interacting]
     Indication: PSYCHOTIC DISORDER
     Dosage: UNK
     Dates: start: 20140317, end: 20140321
  3. TEMESTA                            /00273201/ [Suspect]
     Indication: ANXIETY
     Dosage: 1 MG, QD
     Route: 048
     Dates: end: 20140331
  4. TROSPIUM [Concomitant]
     Dosage: 20 MG, BID
     Route: 048
  5. CLOPIXOL                           /00876703/ [Concomitant]
     Dosage: 20 MG, BID
     Route: 048
     Dates: start: 20140311, end: 20140325
  6. AUGMENTIN [Concomitant]
     Indication: PNEUMONIA
     Dosage: 625 MG, TID
     Route: 048
     Dates: start: 20140326, end: 20140402

REACTIONS (9)
  - Encephalopathy [Unknown]
  - Hypotension [Recovering/Resolving]
  - Electrocardiogram QT prolonged [Recovering/Resolving]
  - Psychotic disorder [Unknown]
  - Depressive symptom [Unknown]
  - Pneumonia [Unknown]
  - Blood pressure fluctuation [Unknown]
  - Tachycardia [Recovering/Resolving]
  - Antipsychotic drug level increased [Unknown]
